FAERS Safety Report 23333193 (Version 1)
Quarter: 2023Q4

REPORT INFORMATION
  Report Type: Spontaneous
  Country: US (occurrence: None)
  Receive Date: 20231222
  Receipt Date: 20231222
  Transmission Date: 20240109
  Serious: Yes (Other)
  Sender: FDA-Public Use
  Company Number: None

PATIENT
  Sex: Female

DRUGS (8)
  1. ESTRADIOL [Suspect]
     Active Substance: ESTRADIOL
     Indication: Assisted fertilisation
     Dosage: FREQUENCY : TWICE A DAY;?
     Route: 048
     Dates: start: 20230720
  2. ASPIRIN CHW [Concomitant]
  3. LEUPROLIDE [Concomitant]
     Active Substance: LEUPROLIDE
  4. VITAMINS [Concomitant]
     Active Substance: VITAMINS
  5. OMEGA 3-6-0 [Concomitant]
  6. PRENATAL TAB [Concomitant]
  7. PROBIOTICS NOS [Concomitant]
     Active Substance: PROBIOTICS NOS
  8. PROGESTERONE MDV [Concomitant]

REACTIONS (2)
  - Abortion spontaneous [None]
  - Maternal exposure timing unspecified [None]
